FAERS Safety Report 8613299-2 (Version None)
Quarter: 2012Q3

REPORT INFORMATION
  Report Type: 
  Country: None (occurrence: None)
  Receive Date: 20120822
  Receipt Date: 20120510
  Transmission Date: 20120928
  Serious: Yes (Other)
  Sender: FDA-Public Use
  Company Number: JP-009507513-1208JPN006866

PATIENT

DRUGS (7)
  1. RABEPRAZOLE SODIUM [Concomitant]
     Indication: GASTROOESOPHAGEAL REFLUX DISEASE
     Dosage: 10 MG, ONCE
     Route: 048
     Dates: start: 20120412, end: 20120423
  2. TELAVIC [Suspect]
     Indication: HEPATITIS C
     Dosage: 1500 MG, ONCE
     Route: 048
     Dates: start: 20120413, end: 20120423
  3. PEG-INTRON [Suspect]
     Indication: HEPATITIS C
     Dosage: 1.5MCG/KG/WEEK
     Route: 058
     Dates: start: 20120413, end: 20120421
  4. REBETOL [Suspect]
     Indication: HEPATITIS C
     Dosage: 400 MG, ONCE
     Route: 048
     Dates: start: 20120413, end: 20120423
  5. CANDESARTAN CILEXETIL [Concomitant]
     Indication: HYPERTENSION
     Dosage: 8 MG, ONCE
     Route: 048
     Dates: end: 20120423
  6. URSO 250 [Concomitant]
     Indication: HEPATITIS C
     Dosage: 600 MG, ONCE
     Route: 048
  7. GLYCYRON [Concomitant]
     Indication: HEPATITIS C
     Dosage: 75 MG, ONCE
     Route: 048

REACTIONS (2)
  - DIVERTICULAR PERFORATION [None]
  - DRUG ERUPTION [None]
